FAERS Safety Report 5491762-3 (Version None)
Quarter: 2007Q4

REPORT INFORMATION
  Report Type: 
  Country: None (occurrence: None)
  Receive Date: 20071022
  Receipt Date: 20071011
  Transmission Date: 20080405
  Serious: Yes (Other)
  Sender: FDA-Public Use
  Company Number: FR-JNJFOC-20071002944

PATIENT
  Age: 63 Year
  Sex: Male

DRUGS (4)
  1. OFLOCET [Suspect]
     Indication: LUNG DISORDER
     Route: 048
  2. ROCEPHIN [Suspect]
     Indication: LUNG DISORDER
     Route: 042
  3. LOVENOX [Concomitant]
     Indication: LUNG DISORDER
     Route: 058
  4. PERFALGAN [Concomitant]
     Route: 042

REACTIONS (2)
  - SCOTOMA [None]
  - VISUAL DISTURBANCE [None]
